FAERS Safety Report 11992658 (Version 1)
Quarter: 2016Q1

REPORT INFORMATION
  Report Type: Spontaneous
  Country: US (occurrence: US)
  Receive Date: 20160203
  Receipt Date: 20160203
  Transmission Date: 20160526
  Serious: No
  Sender: FDA-Public Use
  Company Number: US-UCBSA-2015019756

PATIENT
  Sex: Female

DRUGS (1)
  1. KEPPRA [Suspect]
     Active Substance: LEVETIRACETAM
     Indication: SEIZURE
     Dosage: DOSE: 500 MG/6 A DAY, TOTAL DAILY DOSE 3000 MG

REACTIONS (5)
  - Seizure [Not Recovered/Not Resolved]
  - Memory impairment [Not Recovered/Not Resolved]
  - Grip strength decreased [Not Recovered/Not Resolved]
  - Drug dose omission [Unknown]
  - Speech disorder [Not Recovered/Not Resolved]
